FAERS Safety Report 7561271-6 (Version None)
Quarter: 2011Q2

REPORT INFORMATION
  Report Type: 
  Country: None (occurrence: None)
  Receive Date: 20110621
  Receipt Date: 20100719
  Transmission Date: 20111010
  Serious: No
  Sender: FDA-Public Use
  Company Number: US-ASTRAZENECA-2010SE31002

PATIENT
  Age: 60 Year
  Sex: Female
  Weight: 59 kg

DRUGS (5)
  1. ZITHROMYACIN [Concomitant]
  2. CIPROFLOXACIN HCL [Concomitant]
  3. PULMICORT [Suspect]
     Route: 055
  4. PULMICORT [Suspect]
     Indication: CHRONIC OBSTRUCTIVE PULMONARY DISEASE
     Route: 055
     Dates: start: 20100627
  5. ARMORTHYROID [Concomitant]

REACTIONS (1)
  - OEDEMA PERIPHERAL [None]
